FAERS Safety Report 4877930-X (Version None)
Quarter: 2006Q1

REPORT INFORMATION
  Report Type: 
  Country: None (occurrence: None)
  Receive Date: 20060111
  Receipt Date: 20051108
  Transmission Date: 20060701
  Serious: Yes (Other)
  Sender: FDA-Public Use
  Company Number: US-ROCHE-424255

PATIENT
  Age: 50 Year
  Sex: Female
  Weight: 94.6 kg

DRUGS (4)
  1. PEGASYS [Suspect]
     Route: 058
     Dates: start: 20050325, end: 20051102
  2. COPEGUS [Suspect]
     Route: 048
     Dates: start: 20050325, end: 20051102
  3. TUMS [Concomitant]
  4. PEG-INTRON [Concomitant]

REACTIONS (19)
  - ANTINUCLEAR ANTIBODY INCREASED [None]
  - ARTHRALGIA [None]
  - AUTOIMMUNE DISORDER [None]
  - CHEST PAIN [None]
  - COUGH [None]
  - DECREASED APPETITE [None]
  - DYSPNOEA [None]
  - ERYTHEMA [None]
  - FATIGUE [None]
  - HEADACHE [None]
  - INSOMNIA [None]
  - JOINT SWELLING [None]
  - MUSCULOSKELETAL STIFFNESS [None]
  - PAIN [None]
  - RED BLOOD CELL SEDIMENTATION RATE INCREASED [None]
  - SYSTEMIC LUPUS ERYTHEMATOSUS [None]
  - VIRAL MYOCARDITIS [None]
  - VIRAL PERICARDITIS [None]
  - WEIGHT DECREASED [None]
